FAERS Safety Report 8385048-7 (Version None)
Quarter: 2012Q2

REPORT INFORMATION
  Report Type: 
  Country: None (occurrence: None)
  Receive Date: 20120524
  Receipt Date: 20120516
  Transmission Date: 20120825
  Serious: Yes (Hospitalization, Other)
  Sender: FDA-Public Use
  Company Number: US-MERCK-1110USA04124

PATIENT
  Age: 59 Year
  Sex: Female
  Weight: 73 kg

DRUGS (3)
  1. ACTONEL [Suspect]
     Indication: OSTEOPENIA
     Route: 048
     Dates: start: 19990101, end: 20031201
  2. ALENDRONATE SODIUM [Suspect]
     Indication: OSTEOPENIA
     Route: 048
     Dates: start: 20080530, end: 20091001
  3. FOSAMAX [Suspect]
     Indication: OSTEOPENIA
     Route: 048
     Dates: start: 20030101, end: 20080401

REACTIONS (42)
  - PNEUMOCOCCAL SEPSIS [None]
  - BONE DISORDER [None]
  - ARTHRALGIA [None]
  - NEURALGIA [None]
  - SINUS TACHYCARDIA [None]
  - GAIT DISTURBANCE [None]
  - TOOTH FRACTURE [None]
  - BLOOD CHOLESTEROL INCREASED [None]
  - THROMBOCYTOPENIA [None]
  - PROCEDURAL HAEMORRHAGE [None]
  - ANXIETY [None]
  - DEPRESSION [None]
  - URINARY TRACT INFECTION [None]
  - SYNOVITIS [None]
  - PUBIS FRACTURE [None]
  - PNEUMONIA [None]
  - FALL [None]
  - FRACTURE NONUNION [None]
  - FRACTURE MALUNION [None]
  - GROIN PAIN [None]
  - SLEEP DISORDER [None]
  - FRACTURE DELAYED UNION [None]
  - DEVICE CONNECTION ISSUE [None]
  - MUSCULAR WEAKNESS [None]
  - TONSILLAR DISORDER [None]
  - OSTEOARTHRITIS [None]
  - RHINITIS ALLERGIC [None]
  - PAIN IN EXTREMITY [None]
  - ADRENAL MASS [None]
  - PNEUMONIA PNEUMOCOCCAL [None]
  - ACTINIC KERATOSIS [None]
  - INTERVERTEBRAL DISC DEGENERATION [None]
  - DEVICE FAILURE [None]
  - FEMUR FRACTURE [None]
  - BACK PAIN [None]
  - INTERVERTEBRAL DISC SPACE NARROWING [None]
  - PERIPHERAL NERVE INJURY [None]
  - GRANULOMA ANNULARE [None]
  - LIMB ASYMMETRY [None]
  - PERINEURIAL CYST [None]
  - EAR DISCOMFORT [None]
  - RASH [None]
